FAERS Safety Report 5566163-X (Version None)
Quarter: 2007Q4

REPORT INFORMATION
  Report Type: 
  Country: None (occurrence: None)
  Receive Date: 20071219
  Receipt Date: 20070813
  Transmission Date: 20080405
  Serious: No
  Sender: FDA-Public Use
  Company Number: US-KINGPHARMUSA00001-K200701023

PATIENT

DRUGS (3)
  1. APLISOL [Suspect]
     Dosage: UNK, SINGLE
     Route: 031
     Dates: start: 20070813, end: 20070813
  2. SYNTHROID [Concomitant]
     Indication: HYPOTHYROIDISM
     Route: 048
  3. REQUIP [Concomitant]
     Indication: RESTLESS LEGS SYNDROME
     Route: 048

REACTIONS (1)
  - ACCIDENTAL EXPOSURE [None]
